FAERS Safety Report 6722781-4 (Version None)
Quarter: 2010Q2

REPORT INFORMATION
  Report Type: 
  Country: None (occurrence: None)
  Receive Date: 20100511
  Receipt Date: 20100504
  Transmission Date: 20101027
  Serious: Yes (Hospitalization, Disabling)
  Sender: FDA-Public Use
  Company Number: OSCN-NO-0812L-0644

PATIENT
  Age: 50 Year
  Sex: Male

DRUGS (13)
  1. OMNISCAN [Suspect]
     Indication: DRUG USE FOR UNKNOWN INDICATION
     Dosage: SINGLE DOSE, I.V. ; SINGLE DOSE, I.V. ; SINGLE DOSE, I.V. ; SINGLE DOSE, I.V.
     Route: 042
     Dates: start: 19940101, end: 19940101
  2. OMNISCAN [Suspect]
     Indication: DRUG USE FOR UNKNOWN INDICATION
     Dosage: SINGLE DOSE, I.V. ; SINGLE DOSE, I.V. ; SINGLE DOSE, I.V. ; SINGLE DOSE, I.V.
     Route: 042
     Dates: start: 20050101, end: 20050101
  3. OMNISCAN [Suspect]
     Indication: DRUG USE FOR UNKNOWN INDICATION
     Dosage: SINGLE DOSE, I.V. ; SINGLE DOSE, I.V. ; SINGLE DOSE, I.V. ; SINGLE DOSE, I.V.
     Route: 042
     Dates: start: 20060201, end: 20060201
  4. OMNISCAN [Suspect]
     Indication: DRUG USE FOR UNKNOWN INDICATION
     Dosage: SINGLE DOSE, I.V. ; SINGLE DOSE, I.V. ; SINGLE DOSE, I.V. ; SINGLE DOSE, I.V.
     Route: 042
     Dates: start: 20060901, end: 20060901
  5. MAGNEVIST [Suspect]
     Dosage: SINGLE DOSE ; SINGLE DOSE
     Dates: start: 20050801, end: 20050801
  6. MAGNEVIST [Suspect]
     Dosage: SINGLE DOSE ; SINGLE DOSE
     Dates: start: 20060401, end: 20060401
  7. MAGNEVIST [Suspect]
     Dosage: SINGLE DOSE ; SINGLE DOSE
     Dates: start: 20060901, end: 20060901
  8. MEGLUMINE GADOTERATE (DOTAREM) [Suspect]
  9. STEROIDS [Concomitant]
  10. MYCOPHENOLATE MOFETIL [Concomitant]
  11. TACROLIMUS [Concomitant]
  12. HIGH-DOSE STEROIDS [Concomitant]
  13. AZATHIOPRINE [Concomitant]

REACTIONS (12)
  - BRONCHOPULMONARY ASPERGILLOSIS [None]
  - CEREBRAL ASPERGILLOSIS [None]
  - CORONARY ARTERY DISEASE [None]
  - HAEMODIALYSIS [None]
  - JOINT CONTRACTURE [None]
  - NEPHROGENIC SYSTEMIC FIBROSIS [None]
  - PNEUMONIA CYTOMEGALOVIRAL [None]
  - RENAL TRANSPLANT [None]
  - RENAL VEIN THROMBOSIS [None]
  - SEPSIS [None]
  - TRANSPLANT FAILURE [None]
  - WHEELCHAIR USER [None]
